FAERS Safety Report 21200597 (Version 1)
Quarter: 2022Q3

REPORT INFORMATION
  Report Type: Spontaneous
  Country: US (occurrence: None)
  Receive Date: 20220810
  Receipt Date: 20220810
  Transmission Date: 20221026
  Serious: No
  Sender: FDA-Public Use
  Company Number: None

PATIENT
  Age: 58 Year
  Sex: Female

DRUGS (1)
  1. ENBREL [Suspect]
     Active Substance: ETANERCEPT
     Indication: Psoriasis
     Dosage: INJECT 50MG  SUBCUTANEOUSLY TWO TIMES A  WEEK 72 - 96 HOURS APART FOR 3 MONTHS   AS DIRECTED?
     Route: 058
     Dates: start: 202104

REACTIONS (1)
  - COVID-19 [None]
